FAERS Safety Report 4862110-4 (Version None)
Quarter: 2005Q4

REPORT INFORMATION
  Report Type: 
  Country: None (occurrence: None)
  Receive Date: 20051201
  Receipt Date: 20050813
  Transmission Date: 20060501
  Serious: No
  Sender: FDA-Public Use
  Company Number: 2005PV001190

PATIENT
  Age: 60 Year
  Sex: Female
  Weight: 98.8842 kg

DRUGS (6)
  1. BYETTA [Suspect]
     Indication: DIABETES MELLITUS NON-INSULIN-DEPENDENT
     Dosage: 5 MCG, BID, SC
     Route: 058
     Dates: start: 20050727
  2. GLUCOVANCE [Concomitant]
  3. ZETIA [Concomitant]
  4. LEXAPRO [Concomitant]
  5. PROPRANOLOL [Concomitant]
  6. ACTOS [Concomitant]

REACTIONS (6)
  - DYSPEPSIA [None]
  - HEADACHE [None]
  - MALAISE [None]
  - NAUSEA [None]
  - POLLAKIURIA [None]
  - VOMITING [None]
